FAERS Safety Report 9292296 (Version 1)
Quarter: 2013Q2

REPORT INFORMATION
  Report Type: Spontaneous
  Country: US (occurrence: None)
  Receive Date: 20130515
  Receipt Date: 20130515
  Transmission Date: 20140414
  Serious: Yes (Other)
  Sender: FDA-Public Use
  Company Number: None

PATIENT
  Age: 88 Year
  Sex: Female
  Weight: 43.55 kg

DRUGS (2)
  1. DIGOXIN [Suspect]
     Dosage: 1/2 PILL  1-ONCE DAY MOUTH
     Dates: start: 20121005, end: 20121017
  2. BISOPROLOL FUMARATE [Suspect]
     Dosage: 1/2 PILL  1X DAY MOUTH
     Dates: start: 20121011, end: 20121017

REACTIONS (9)
  - Carpal tunnel syndrome [None]
  - Asthenia [None]
  - Pruritus [None]
  - Skin disorder [None]
  - Hypoaesthesia [None]
  - Feeling cold [None]
  - Joint stiffness [None]
  - Fatigue [None]
  - Refusal of treatment by patient [None]
